FAERS Safety Report 16314752 (Version 1)
Quarter: 2019Q2

REPORT INFORMATION
  Report Type: Spontaneous
  Country: US (occurrence: US)
  Receive Date: 20190515
  Receipt Date: 20190515
  Transmission Date: 20190711
  Serious: No
  Sender: FDA-Public Use
  Company Number: US-AMGEN-USASP2019074180

PATIENT

DRUGS (2)
  1. PARSABIV [Suspect]
     Active Substance: ETELCALCETIDE HYDROCHLORIDE
     Indication: PRODUCT USED FOR UNKNOWN INDICATION
     Dosage: 15 MILLIGRAM, 3 TIMES/WK
     Route: 065
  2. CALCITRIOL. [Concomitant]
     Active Substance: CALCITRIOL
     Dosage: UNK

REACTIONS (3)
  - Overdose [Unknown]
  - Blood calcium decreased [Unknown]
  - Adverse reaction [Unknown]
